FAERS Safety Report 8321511-2 (Version None)
Quarter: 2012Q2

REPORT INFORMATION
  Report Type: 
  Country: None (occurrence: None)
  Receive Date: 20120430
  Receipt Date: 20120430
  Transmission Date: 20120825
  Serious: Yes (Other)
  Sender: FDA-Public Use
  Company Number: None

PATIENT
  Age: 15 Year
  Sex: Male
  Weight: 56.699 kg

DRUGS (2)
  1. CLINDAMYACIN [Concomitant]
     Indication: ORAL INFECTION
     Dosage: 150 MG
     Route: 004
     Dates: start: 20120302, end: 20120312
  2. CLINDAMYCIN [Suspect]
     Indication: ORAL INFECTION
     Dosage: 300 MG
     Route: 004
     Dates: start: 20120210, end: 20120215

REACTIONS (1)
  - CLOSTRIDIUM DIFFICILE COLITIS [None]
